FAERS Safety Report 20411568 (Version 1)
Quarter: 2022Q1

REPORT INFORMATION
  Report Type: Spontaneous
  Country: CN (occurrence: None)
  Receive Date: 20220201
  Receipt Date: 20220201
  Transmission Date: 20220423
  Serious: Yes (Hospitalization, Other)
  Sender: FDA-Public Use
  Company Number: 2022A035568

PATIENT
  Age: 67 Year
  Sex: Male
  Weight: 62 kg

DRUGS (1)
  1. IMFINZI [Suspect]
     Active Substance: DURVALUMAB
     Indication: Non-small cell lung cancer
     Dosage: 620MG/PERIOD,ONCE EVERY TWO OR THREE WEEKS
     Route: 042
     Dates: start: 20210606

REACTIONS (3)
  - Cardiac failure [Recovering/Resolving]
  - Pneumonitis [Recovering/Resolving]
  - Pleural effusion [Recovering/Resolving]
